FAERS Safety Report 5618240-2 (Version None)
Quarter: 2008Q1

REPORT INFORMATION
  Report Type: 
  Country: None (occurrence: None)
  Receive Date: 20080206
  Receipt Date: 20080206
  Transmission Date: 20080703
  Serious: Yes (Other)
  Sender: FDA-Public Use
  Company Number: None

PATIENT
  Age: 36 Year
  Sex: Female
  Weight: 68.0396 kg

DRUGS (1)
  1. ERYTHROMYCIN [Suspect]
     Indication: CORNEAL ABRASION
     Dosage: 1/2^ STRIP BID OPTHALMIC 1 DOSE
     Route: 047
     Dates: start: 20071230, end: 20071230

REACTIONS (3)
  - NAUSEA [None]
  - NO THERAPEUTIC RESPONSE [None]
  - VOMITING [None]
